FAERS Safety Report 8809644 (Version 2)
Quarter: 2014Q3

REPORT INFORMATION
  Report Type: Report from Study
  Country: US (occurrence: US)
  Receive Date: 20120926
  Receipt Date: 20140829
  Transmission Date: 20150326
  Serious: Yes (Death, Other)
  Sender: FDA-Public Use
  Company Number: US-ROCHE-1127544

PATIENT
  Sex: Male
  Weight: 66.45 kg

DRUGS (3)
  1. AVASTIN [Suspect]
     Active Substance: BEVACIZUMAB
     Indication: DWARFISM
     Route: 042
  2. AVASTIN [Suspect]
     Active Substance: BEVACIZUMAB
     Indication: BRAIN NEOPLASM MALIGNANT
  3. CPT-11 [Suspect]
     Active Substance: IRINOTECAN
     Indication: DWARFISM
     Route: 065

REACTIONS (3)
  - Generalised tonic-clonic seizure [Unknown]
  - Off label use [Unknown]
  - Death [Fatal]
